FAERS Safety Report 21606502 (Version 2)
Quarter: 2023Q1

REPORT INFORMATION
  Report Type: Spontaneous
  Country: US (occurrence: US)
  Receive Date: 20221117
  Receipt Date: 20230103
  Transmission Date: 20230418
  Serious: No
  Sender: FDA-Public Use
  Company Number: US-JNJFOC-20221118299

PATIENT
  Age: 11 Year
  Sex: Male

DRUGS (5)
  1. STELARA [Suspect]
     Active Substance: USTEKINUMAB
     Indication: Crohn^s disease
     Route: 040
     Dates: start: 20220301
  2. STELARA [Suspect]
     Active Substance: USTEKINUMAB
     Dosage: Q8 WEEKS TO Q6 WEEKS IN MAY AND MOST RECENTLY Q4 WEEKS IN AUGUST 2022.
     Route: 058
     Dates: start: 202205
  3. STELARA [Suspect]
     Active Substance: USTEKINUMAB
     Dosage: Q8 WEEKS TO Q6 WEEKS IN MAY AND MOST RECENTLY Q4 WEEKS IN AUGUST 2022.
     Route: 058
     Dates: start: 202208
  4. ENTOCORT [Concomitant]
     Active Substance: BUDESONIDE
     Indication: Crohn^s disease
     Route: 065
     Dates: start: 202210
  5. METRONIDAZOLE [Concomitant]
     Active Substance: METRONIDAZOLE
     Indication: Crohn^s disease
     Route: 065
     Dates: start: 20221010, end: 20221015

REACTIONS (5)
  - Aspartate aminotransferase increased [Not Recovered/Not Resolved]
  - Alanine aminotransferase increased [Not Recovered/Not Resolved]
  - Off label use [Unknown]
  - Off label use [Unknown]
  - Hypertransaminasaemia [Recovering/Resolving]

NARRATIVE: CASE EVENT DATE: 20220901
